FAERS Safety Report 9593070 (Version 1)
Quarter: 2013Q4

REPORT INFORMATION
  Report Type: Report from Study
  Country: JP (occurrence: JP)
  Receive Date: 20131004
  Receipt Date: 20131004
  Transmission Date: 20140711
  Serious: Yes (Hospitalization)
  Sender: FDA-Public Use
  Company Number: JP-ASTELLAS-2013JP010138

PATIENT
  Age: 84 Year
  Sex: Female
  Weight: 41 kg

DRUGS (2)
  1. MIRABEGRON [Suspect]
     Indication: HYPERTONIC BLADDER
     Dosage: 25 MG, BID
     Route: 048
     Dates: start: 20130502, end: 20130611
  2. MIRABEGRON [Suspect]
     Dosage: 25 MG, BID
     Route: 048
     Dates: start: 20130723

REACTIONS (2)
  - Intentional drug misuse [Unknown]
  - Ileus [Recovered/Resolved]
